FAERS Safety Report 21802549 (Version 15)
Quarter: 2024Q1

REPORT INFORMATION
  Report Type: Spontaneous
  Country: CA (occurrence: CA)
  Receive Date: 20221231
  Receipt Date: 20240226
  Transmission Date: 20240410
  Serious: Yes (Other)
  Sender: FDA-Public Use
  Company Number: CA-CELLTRION INC.-2022CA017654

PATIENT

DRUGS (16)
  1. INFLECTRA [Suspect]
     Active Substance: INFLIXIMAB-DYYB
     Indication: Crohn^s disease
     Dosage: 0, 2, 6 WEEKS INDUCTION THEN EVERY 8 WEEKS
     Route: 042
     Dates: start: 20221109
  2. INFLECTRA [Suspect]
     Active Substance: INFLIXIMAB-DYYB
     Dosage: 0, 2, 6 WEEKS INDUCTION THEN EVERY 8 WEEKS
     Route: 042
     Dates: start: 20221121
  3. INFLECTRA [Suspect]
     Active Substance: INFLIXIMAB-DYYB
     Dosage: EVERY 4 WEEKS
     Route: 042
     Dates: start: 20221221
  4. INFLECTRA [Suspect]
     Active Substance: INFLIXIMAB-DYYB
     Dosage: EVERY 4 WEEKS
     Route: 042
     Dates: start: 20230123
  5. INFLECTRA [Suspect]
     Active Substance: INFLIXIMAB-DYYB
     Dosage: EVERY 4 WEEKS
     Route: 042
     Dates: start: 20230222
  6. INFLECTRA [Suspect]
     Active Substance: INFLIXIMAB-DYYB
     Dosage: 7.5 MG/KG EVERY 4 WEEKS
     Route: 042
     Dates: start: 20230320
  7. INFLECTRA [Suspect]
     Active Substance: INFLIXIMAB-DYYB
     Dosage: UNK
     Route: 042
     Dates: start: 20230424
  8. INFLECTRA [Suspect]
     Active Substance: INFLIXIMAB-DYYB
     Dosage: EVERY 4 WEEKS
     Route: 042
     Dates: start: 20230609
  9. INFLECTRA [Suspect]
     Active Substance: INFLIXIMAB-DYYB
     Dosage: EVERY 4 WEEKS
     Route: 042
     Dates: start: 20230706
  10. INFLECTRA [Suspect]
     Active Substance: INFLIXIMAB-DYYB
     Dosage: 10MG/KG EVERY 4 WEEKS
     Route: 042
     Dates: start: 20230804
  11. INFLECTRA [Suspect]
     Active Substance: INFLIXIMAB-DYYB
     Dosage: 10MG/KG 3 WEEKS AND 5 DAYS
     Route: 042
     Dates: start: 20230830
  12. INFLECTRA [Suspect]
     Active Substance: INFLIXIMAB-DYYB
     Dosage: EVERY 4 WEEKS
     Route: 042
     Dates: start: 20231221
  13. INFLECTRA [Suspect]
     Active Substance: INFLIXIMAB-DYYB
     Dosage: 1040 MG EVERY 4 WEEKS
     Route: 042
     Dates: start: 20240215
  14. CALCIUM [Concomitant]
     Active Substance: CALCIUM
     Dosage: UNK
  15. IRON [Concomitant]
     Active Substance: IRON
     Dosage: UNK
  16. VITAMIN D [Concomitant]
     Active Substance: VITAMIN D NOS
     Dosage: UNK

REACTIONS (16)
  - Condition aggravated [Recovering/Resolving]
  - Tooth infection [Unknown]
  - Oropharyngeal discomfort [Unknown]
  - Malaise [Not Recovered/Not Resolved]
  - Streptococcal infection [Not Recovered/Not Resolved]
  - Chest pain [Recovered/Resolved]
  - Back pain [Recovered/Resolved]
  - Gastrointestinal disorder [Not Recovered/Not Resolved]
  - Vomiting [Unknown]
  - Feeling abnormal [Unknown]
  - Post procedural complication [Unknown]
  - Post procedural infection [Not Recovered/Not Resolved]
  - Off label use [Unknown]
  - Off label use [Unknown]
  - Intentional product use issue [Unknown]
  - Inappropriate schedule of product administration [Unknown]

NARRATIVE: CASE EVENT DATE: 20220101
